FAERS Safety Report 17892219 (Version 2)
Quarter: 2020Q2

REPORT INFORMATION
  Report Type: Report from Study
  Country: EG (occurrence: EG)
  Receive Date: 20200612
  Receipt Date: 20200622
  Transmission Date: 20200714
  Serious: Yes (Life-Threatening)
  Sender: FDA-Public Use
  Company Number: EG-NOVOPROD-732766

PATIENT
  Age: 736 Month
  Sex: Female

DRUGS (4)
  1. INSULIN [Concomitant]
     Active Substance: INSULIN NOS
     Indication: DIABETES MELLITUS
     Dosage: 60 IU, QD(40 U MORNING AND 20 U NIGHT)
     Route: 058
  2. MIXTARD 30 [Suspect]
     Active Substance: INSULIN HUMAN
     Dosage: 100 IU, QD(60 U MORNING AND 40 U NIGHT)
     Route: 058
  3. MIXTARD 30 [Suspect]
     Active Substance: INSULIN HUMAN
     Indication: DIABETES MELLITUS
     Dosage: UNK
     Route: 058
  4. MIXTARD 30 [Suspect]
     Active Substance: INSULIN HUMAN
     Dosage: 60 IU, QD(40 U MORNING AND 20 U NIGHT)
     Route: 058

REACTIONS (3)
  - Neuropathy peripheral [Recovered/Resolved]
  - Hyperglycaemia [Recovered/Resolved]
  - Hypoglycaemic unconsciousness [Recovered/Resolved]

NARRATIVE: CASE EVENT DATE: 201910
